FAERS Safety Report 6232198-7 (Version None)
Quarter: 2009Q2

REPORT INFORMATION
  Report Type: 
  Country: None (occurrence: None)
  Receive Date: 20090615
  Receipt Date: 20090608
  Transmission Date: 20091009
  Serious: Yes (Hospitalization)
  Sender: FDA-Public Use
  Company Number: A0755897A

PATIENT
  Age: 39 Year
  Sex: Female
  Weight: 76.5218 kg

DRUGS (2)
  1. PAZOPANIB TABLET (PAZOPANIB) [Suspect]
     Indication: THYROID CANCER
     Dosage: 800 MG PER DAY ORAL
     Route: 048
     Dates: start: 20080710
  2. AUGMENTIN '125' [Suspect]
     Indication: URINARY TRACT INFECTION
     Dosage: ORAL
     Route: 048

REACTIONS (6)
  - DEHYDRATION [None]
  - DIARRHOEA [None]
  - GRANULOCYTES ABNORMAL [None]
  - HYPERBILIRUBINAEMIA [None]
  - METASTASES TO LUNG [None]
  - NEUTROPHIL COUNT ABNORMAL [None]
